FAERS Safety Report 9115710 (Version 4)
Quarter: 2013Q2

REPORT INFORMATION
  Report Type: Spontaneous
  Country: US (occurrence: US)
  Receive Date: 20130225
  Receipt Date: 20130423
  Transmission Date: 20140414
  Serious: No
  Sender: FDA-Public Use
  Company Number: US-PFIZER INC-2013065851

PATIENT
  Age: 67 Year
  Sex: Male

DRUGS (8)
  1. LYRICA [Suspect]
     Indication: TARSAL TUNNEL SYNDROME
     Dosage: 250 MG, 1X/DAY (100MG IN THE MORNING AND 150MG IN THE AFTERNOON)
     Dates: start: 201007
  2. LYRICA [Suspect]
     Indication: NEURALGIA
  3. METFORMIN [Concomitant]
     Indication: TYPE 2 DIABETES MELLITUS
     Dosage: UNK, 500 DAILY
     Dates: start: 2010
  4. DIOVAN (VALSARTAN) [Concomitant]
     Indication: TYPE 2 DIABETES MELLITUS
     Dosage: UNK, 80 DAILY
     Dates: start: 2010
  5. CRESTOR [Concomitant]
     Indication: BLOOD CHOLESTEROL INCREASED
     Dosage: UNK, 5 QOD
     Dates: start: 2008
  6. ECOTRIN [Concomitant]
     Dosage: UNK, 81 DAILY
  7. MOBIC [Concomitant]
     Indication: BLOOD CHOLESTEROL INCREASED
     Dosage: UNK, 15 DAILY
     Dates: start: 2008
  8. OMEPRAZOL [Concomitant]
     Dosage: UNK, 20 DAILY

REACTIONS (4)
  - Erythema annulare [Not Recovered/Not Resolved]
  - Dermatitis [Not Recovered/Not Resolved]
  - Off label use [Unknown]
  - Skin exfoliation [Unknown]
